FAERS Safety Report 5317721-9 (Version None)
Quarter: 2007Q2

REPORT INFORMATION
  Report Type: 
  Country: None (occurrence: None)
  Receive Date: 20070507
  Receipt Date: 20070427
  Transmission Date: 20071010
  Serious: Yes (Hospitalization)
  Sender: FDA-Public Use
  Company Number: US-AVENTIS-200711943GDDC

PATIENT
  Age: 61 Year
  Sex: Male
  Weight: 77 kg

DRUGS (12)
  1. TAXOTERE [Suspect]
     Indication: PROSTATE CANCER
     Route: 042
     Dates: start: 20060914, end: 20061228
  2. BEVACIZUMAB [Suspect]
     Indication: PROSTATE CANCER
     Dates: start: 20060914, end: 20061207
  3. ASPIRIN [Concomitant]
     Route: 048
     Dates: start: 20060824
  4. ATIVAN [Concomitant]
     Route: 048
     Dates: start: 20070102, end: 20070103
  5. COMPAZINE [Concomitant]
     Indication: NAUSEA
     Dosage: DOSE: 10 Q6H PRN
     Route: 048
     Dates: start: 20060914
  6. DECADRON [Concomitant]
     Route: 048
     Dates: start: 20060824
  7. FISH OIL [Concomitant]
     Route: 048
     Dates: start: 20060824
  8. GLUCOSAMINE [Concomitant]
     Dosage: DOSE: 6 TABLETS
     Route: 048
     Dates: start: 20060824
  9. HYCODAN                            /00060002/ [Concomitant]
     Indication: COUGH
     Dosage: DOSE: 5-10 ML PHS PRN
     Route: 048
     Dates: start: 20070102
  10. LOVASTATIN [Concomitant]
     Route: 048
     Dates: start: 20060824
  11. NEULASTA [Concomitant]
     Route: 058
     Dates: start: 20061114, end: 20061114
  12. ROBITUSSIN AC [Concomitant]
     Indication: COUGH
     Dosage: DOSE: 5 ML Q6H PRN
     Route: 048
     Dates: start: 20061219

REACTIONS (1)
  - BLADDER PERFORATION [None]
